FAERS Safety Report 5235266-1 (Version None)
Quarter: 2007Q1

REPORT INFORMATION
  Report Type: 
  Country: None (occurrence: None)
  Receive Date: 20070212
  Receipt Date: 20070202
  Transmission Date: 20070707
  Serious: Yes (Other)
  Sender: FDA-Public Use
  Company Number: GB-JNJFOC-20070106232

PATIENT
  Age: 22 Year
  Sex: Male

DRUGS (5)
  1. RISPERDAL [Suspect]
     Indication: SCHIZOPHRENIA
     Route: 048
  2. HALOPERIDOL [Suspect]
     Indication: AGITATION
     Dosage: TAKEN WHEN NECESSARY
     Route: 048
  3. HALOPERIDOL [Suspect]
     Dosage: TAKEN WHEN NECESSARY
     Route: 030
  4. LORAZEPAM [Concomitant]
     Indication: AGITATION
     Route: 065
  5. PROCYCLIDINE HYDROCHLORIDE 2MG TAB [Concomitant]
     Indication: EXTRAPYRAMIDAL DISORDER

REACTIONS (2)
  - GYNAECOMASTIA [None]
  - HYPERPROLACTINAEMIA [None]
